FAERS Safety Report 8835051 (Version 1)
Quarter: 2012Q4

REPORT INFORMATION
  Report Type: Spontaneous
  Country: US (occurrence: None)
  Receive Date: 20121009
  Receipt Date: 20121009
  Transmission Date: 20130627
  Serious: Yes (Hospitalization, Other)
  Sender: FDA-Public Use
  Company Number: 2012P1059063

PATIENT
  Age: 65 Year
  Sex: Female
  Weight: 140.62 kg

DRUGS (6)
  1. DOXYCYCLINE HYCLATE [Suspect]
     Indication: PNEUMONIA
     Route: 048
     Dates: start: 20120917, end: 201209
  2. INSULIN [Concomitant]
  3. BLOOD PRESSURE PILLS [Concomitant]
  4. POTASSIUM [Concomitant]
  5. MAGNESIUM [Concomitant]
  6. CHEMOTHERAPY [Concomitant]

REACTIONS (3)
  - Hyperhidrosis [None]
  - Asthenia [None]
  - Blood glucose decreased [None]
